FAERS Safety Report 4294761-2 (Version None)
Quarter: 2004Q1

REPORT INFORMATION
  Report Type: 
  Country: None (occurrence: None)
  Receive Date: 20040213
  Receipt Date: 20040203
  Transmission Date: 20041129
  Serious: Yes (Death)
  Sender: FDA-Public Use
  Company Number: WAES 0402USA00376

PATIENT
  Age: 79 Year
  Sex: Female

DRUGS (7)
  1. FOSAMAX [Suspect]
     Indication: OSTEOPOROSIS
     Route: 048
     Dates: end: 20040202
  2. NORVASC [Concomitant]
     Indication: HYPERTENSION
     Route: 048
  3. ASPIRIN [Concomitant]
     Indication: PROPHYLAXIS
     Route: 048
     Dates: start: 20040131
  4. DIAZEPAM [Concomitant]
     Indication: HYPERTENSION
     Route: 048
  5. COMELIAN [Concomitant]
     Indication: HYPERTENSION
     Route: 048
  6. GASLON [Concomitant]
     Indication: PROPHYLAXIS
     Route: 048
     Dates: start: 20040131
  7. SELBEX [Concomitant]
     Route: 048

REACTIONS (2)
  - MYOCARDIAL INFARCTION [None]
  - PULMONARY INFARCTION [None]
